FAERS Safety Report 23670253 (Version 2)
Quarter: 2024Q2

REPORT INFORMATION
  Report Type: Spontaneous
  Country: BE (occurrence: BE)
  Receive Date: 20240325
  Receipt Date: 20240602
  Transmission Date: 20240716
  Serious: Yes (Other)
  Sender: FDA-Public Use
  Company Number: None

PATIENT
  Age: 54 Year
  Sex: Male
  Weight: 66 kg

DRUGS (2)
  1. STELARA [Suspect]
     Active Substance: USTEKINUMAB
     Indication: Product used for unknown indication
     Dosage: PATIENT STARTED STELARA ON 12-02-24 AND TOOK IT AGAIN ON 22-02-24 (UNK DOSE)
     Route: 065
     Dates: start: 20240212
  2. PENTASA [Concomitant]
     Active Substance: MESALAMINE
     Route: 065

REACTIONS (7)
  - Blood creatinine increased [Unknown]
  - White blood cell count increased [Unknown]
  - Conjunctival hyperaemia [Unknown]
  - Blood urine present [Unknown]
  - C-reactive protein increased [Unknown]
  - Haematuria [Unknown]
  - Gingival bleeding [Unknown]
